FAERS Safety Report 5343403-3 (Version None)
Quarter: 2007Q2

REPORT INFORMATION
  Report Type: 
  Country: None (occurrence: None)
  Receive Date: 20070531
  Receipt Date: 20070522
  Transmission Date: 20071010
  Serious: Yes (Life-Threatening)
  Sender: FDA-Public Use
  Company Number: GXKR2007LT04482

PATIENT
  Age: 70 Year
  Sex: Male
  Weight: 75 kg

DRUGS (3)
  1. KETONAL (NGX) (KETOPROFEN) UNKNOWN, 100/2MG/ML [Suspect]
     Indication: BACK PAIN
     Dosage: 100 MG, QD, INTRAMUSCULAR
     Route: 029
     Dates: start: 20070505
  2. TRAMADOL HCL [Concomitant]
  3. CYPROTERONE [Concomitant]

REACTIONS (4)
  - ASTHENIA [None]
  - COLD SWEAT [None]
  - HYPOTENSION [None]
  - PALLOR [None]
